FAERS Safety Report 24234846 (Version 1)
Quarter: 2024Q3

REPORT INFORMATION
  Report Type: Spontaneous
  Country: CH (occurrence: CH)
  Receive Date: 20240821
  Receipt Date: 20240821
  Transmission Date: 20241017
  Serious: Yes (Hospitalization, Other)
  Sender: BRISTOL MYERS SQUIBB
  Company Number: None

PATIENT
  Age: 79 Year
  Sex: Male
  Weight: 61 kg

DRUGS (17)
  1. YERVOY [Interacting]
     Active Substance: IPILIMUMAB
     Indication: Product used for unknown indication
     Route: 042
     Dates: start: 20240515, end: 20240519
  2. YERVOY [Interacting]
     Active Substance: IPILIMUMAB
     Route: 042
     Dates: start: 20240529, end: 20240529
  3. OPDIVO [Interacting]
     Active Substance: NIVOLUMAB
     Indication: Pleural mesothelioma
     Route: 042
     Dates: start: 20240515, end: 20240515
  4. OPDIVO [Interacting]
     Active Substance: NIVOLUMAB
     Route: 042
     Dates: start: 20240529, end: 20240529
  5. LEFLUNOMIDE [Interacting]
     Active Substance: LEFLUNOMIDE
     Indication: Undifferentiated spondyloarthritis
     Route: 048
     Dates: start: 201006
  6. LEFLUNOMIDE [Interacting]
     Active Substance: LEFLUNOMIDE
     Route: 048
     Dates: start: 2021
  7. INFLIXIMAB [Interacting]
     Active Substance: INFLIXIMAB
     Indication: Undifferentiated spondyloarthritis
     Route: 040
     Dates: start: 200802
  8. INFLIXIMAB [Interacting]
     Active Substance: INFLIXIMAB
     Route: 040
  9. NOVALGIN (METAMIZOLE SODIUM) [Concomitant]
     Active Substance: METAMIZOLE SODIUM
     Indication: Product used for unknown indication
     Route: 048
  10. TAMSULOSIN MEPHA [Concomitant]
     Indication: Product used for unknown indication
     Dosage: RETARD DEPOTCAPS
     Route: 048
  11. VITAMIN D3 SPIRIG HC [Concomitant]
     Indication: Product used for unknown indication
     Dosage: (800 [IU])
     Route: 048
  12. ACETAMINOPHEN\CODEINE PHOSPHATE [Concomitant]
     Active Substance: ACETAMINOPHEN\CODEINE PHOSPHATE
     Indication: Product used for unknown indication
     Dosage: 500 MG PARACETAMOL/ 30 MG CODEINE PER TABLET (1 {DF})
     Route: 048
  13. BENSERAZIDE HYDROCHLORIDE\LEVODOPA [Concomitant]
     Active Substance: BENSERAZIDE HYDROCHLORIDE\LEVODOPA
     Indication: Parkinson^s disease
     Dosage: 100 MG LEVODOPA/ 25 MG BENSERAZIDE PER TABLET (1 {DF})
     Route: 048
     Dates: start: 202401
  14. ELIQUIS [Concomitant]
     Active Substance: APIXABAN
     Indication: Deep vein thrombosis
     Route: 048
  15. EXFORGE [Concomitant]
     Active Substance: AMLODIPINE BESYLATE\VALSARTAN
     Indication: Hypertension
     Dosage: (1 {DF})
     Route: 048
  16. EXFORGE [Concomitant]
     Active Substance: AMLODIPINE BESYLATE\VALSARTAN
     Route: 048
  17. ATORVASTATIN VIATRIS [Concomitant]
     Indication: Product used for unknown indication
     Dosage: 20 MG ATORVASTATIN PER TABLET
     Route: 048

REACTIONS (5)
  - Immune-mediated lung disease [Recovering/Resolving]
  - Drug interaction [Unknown]
  - Off label use [Unknown]
  - Pleural effusion [Unknown]
  - Acute respiratory failure [Unknown]

NARRATIVE: CASE EVENT DATE: 20240603
